FAERS Safety Report 5974712-2 (Version None)
Quarter: 2008Q4

REPORT INFORMATION
  Report Type: 
  Country: None (occurrence: None)
  Receive Date: 20081201
  Receipt Date: 20080206
  Transmission Date: 20090506
  Serious: No
  Sender: FDA-Public Use
  Company Number: US-AMGEN-KDL264445

PATIENT
  Sex: Female

DRUGS (2)
  1. ENBREL [Suspect]
     Indication: RHEUMATOID ARTHRITIS
     Route: 058
     Dates: start: 20080129
  2. SULFASALAZINE [Concomitant]
     Route: 048
     Dates: start: 20070101

REACTIONS (2)
  - DIZZINESS [None]
  - SENSATION OF PRESSURE [None]
